FAERS Safety Report 24853567 (Version 1)
Quarter: 2025Q1

REPORT INFORMATION
  Report Type: Report from Study
  Country: IN (occurrence: IN)
  Receive Date: 20250117
  Receipt Date: 20250117
  Transmission Date: 20250409
  Serious: Yes (Death)
  Sender: ROCHE
  Company Number: IN-ROCHE-10000166061

PATIENT
  Age: 57 Year
  Sex: Male

DRUGS (1)
  1. TECENTRIQ [Suspect]
     Active Substance: ATEZOLIZUMAB
     Indication: Small cell lung cancer metastatic
     Route: 042
     Dates: start: 20240524

REACTIONS (5)
  - Immunodeficiency [Unknown]
  - Asthenia [Unknown]
  - Feeding disorder [Unknown]
  - Illness [Fatal]
  - Disease progression [Fatal]

NARRATIVE: CASE EVENT DATE: 20250112
